FAERS Safety Report 14242110 (Version 1)
Quarter: 2017Q4

REPORT INFORMATION
  Report Type: Spontaneous
  Country: US (occurrence: US)
  Receive Date: 20171130
  Receipt Date: 20171130
  Transmission Date: 20180321
  Serious: Yes (Hospitalization)
  Sender: FDA-Public Use
  Company Number: None

PATIENT
  Age: 61 Year
  Sex: Female
  Weight: 114.5 kg

DRUGS (14)
  1. CARFILZOMIB [Suspect]
     Active Substance: CARFILZOMIB
     Indication: SMALL CELL CARCINOMA
     Dosage: OTHER FREQUENCY:DAYS 1,2 8,9 15,16;?
     Route: 041
     Dates: start: 20171114, end: 20171122
  2. SCOPOLAMINE [Concomitant]
     Active Substance: SCOPOLAMINE
  3. K-TAB [Concomitant]
     Active Substance: POTASSIUM CHLORIDE
  4. ENOXAPARIN [Concomitant]
     Active Substance: ENOXAPARIN
  5. ATORVASTATIN [Concomitant]
     Active Substance: ATORVASTATIN
  6. MAGNESIUM [Concomitant]
     Active Substance: MAGNESIUM
  7. GABAPENTIN. [Concomitant]
     Active Substance: GABAPENTIN
  8. IRINOTECAN [Suspect]
     Active Substance: IRINOTECAN
     Indication: SMALL CELL CARCINOMA
     Dosage: OTHER FREQUENCY:DAYS 1,8,15;?
     Route: 041
     Dates: start: 20171114, end: 20171121
  9. PROCHLORPERAZINE. [Concomitant]
     Active Substance: PROCHLORPERAZINE
  10. MONTELUKAST [Concomitant]
     Active Substance: MONTELUKAST SODIUM
  11. OMEPRAZOLE. [Concomitant]
     Active Substance: OMEPRAZOLE
  12. LOPARAMIDE [Concomitant]
  13. ALBUTEROL. [Concomitant]
     Active Substance: ALBUTEROL
  14. NAPROXEN. [Concomitant]
     Active Substance: NAPROXEN

REACTIONS (4)
  - Therapy non-responder [None]
  - Febrile neutropenia [None]
  - Diarrhoea [None]
  - Vomiting [None]

NARRATIVE: CASE EVENT DATE: 20171127
